FAERS Safety Report 5914416-5 (Version None)
Quarter: 2008Q4

REPORT INFORMATION
  Report Type: 
  Country: None (occurrence: None)
  Receive Date: 20081009
  Receipt Date: 20080929
  Transmission Date: 20090506
  Serious: Yes (Other)
  Sender: FDA-Public Use
  Company Number: DE-GILEAD-2008-0018426

PATIENT
  Sex: Female
  Weight: 70.5 kg

DRUGS (6)
  1. TRUVADA [Suspect]
     Indication: HIV INFECTION
     Route: 048
     Dates: start: 20070808
  2. LOPINAVIR AND RITONAVIR [Concomitant]
     Indication: HIV INFECTION
     Dates: start: 20070808, end: 20071009
  3. AZT [Concomitant]
     Indication: HIV INFECTION
     Dates: start: 20071009
  4. FEMIBION [Concomitant]
     Indication: PREGNANCY
     Dates: start: 20070101
  5. MAGNESIUM SULFATE [Concomitant]
     Indication: PREGNANCY
     Dates: start: 20070101
  6. IRON [Concomitant]
     Indication: PREGNANCY
     Dates: start: 20070101

REACTIONS (2)
  - PREGNANCY [None]
  - PYELONEPHRITIS ACUTE [None]
